FAERS Safety Report 16005036 (Version 2)
Quarter: 2019Q1

REPORT INFORMATION
  Report Type: Report from Study
  Country: MX (occurrence: MX)
  Receive Date: 20190226
  Receipt Date: 20190311
  Transmission Date: 20190418
  Serious: Yes (Hospitalization, Other)
  Sender: FDA-Public Use
  Company Number: PHHY2019MX042956

PATIENT
  Age: 61 Year
  Sex: Male

DRUGS (9)
  1. VENCLEXTA [Concomitant]
     Active Substance: VENETOCLAX
     Indication: LEUKAEMIA
     Dosage: 100 MG, CHANGED THE DOSE EVERY WEEK
     Route: 048
     Dates: start: 201810
  2. REVOLADE [Suspect]
     Active Substance: ELTROMBOPAG
     Indication: LEUKAEMIA
  3. VIDAZA [Suspect]
     Active Substance: AZACITIDINE
     Indication: CHEMOTHERAPY
     Dosage: 7 DF EVERY 21 DAYS
     Route: 058
     Dates: start: 201810, end: 201901
  4. ZYLOPRIM [Concomitant]
     Active Substance: ALLOPURINOL
     Indication: PROPHYLAXIS
     Dosage: 1 DF, QD AT EATING TIME DAILY
     Route: 048
     Dates: start: 201810
  5. PSYLLIUM [Concomitant]
     Active Substance: PLANTAGO SEED
     Indication: SUPPLEMENTATION THERAPY
     Route: 048
  6. FENABBOTT [Suspect]
     Active Substance: PHENOBARBITAL SODIUM
     Indication: ENCEPHALOPATHY
     Dosage: 1 DF, QHS (AT NIGHT) FROM 40 YEARS AGO TO ONE MONTH AGO
     Route: 048
  7. VIDAZA [Suspect]
     Active Substance: AZACITIDINE
     Indication: LEUKAEMIA
  8. REVOLADE [Suspect]
     Active Substance: ELTROMBOPAG
     Indication: PLATELET COUNT INCREASED
     Dosage: 1 DF, QD (AT 4 AM)
     Route: 048
     Dates: start: 20181215
  9. TEGRETOL [Suspect]
     Active Substance: CARBAMAZEPINE
     Indication: EPILEPSY
     Dosage: 4.5 DF, (2 ? IN THE MORNING AND 2 AT NIGHT DEPENDIN G ON THE DOSE UNIT )
     Route: 048

REACTIONS (8)
  - Immunosuppression [Recovering/Resolving]
  - Encephalopathy [Recovering/Resolving]
  - Aphasia [Recovering/Resolving]
  - Product use in unapproved indication [Unknown]
  - Dysphagia [Recovering/Resolving]
  - Urinary tract infection [Recovering/Resolving]
  - Haemoglobin decreased [Recovering/Resolving]
  - Blindness [Recovering/Resolving]

NARRATIVE: CASE EVENT DATE: 20190123
